FAERS Safety Report 8933803 (Version 12)
Quarter: 2015Q3

REPORT INFORMATION
  Report Type: Spontaneous
  Country: CA (occurrence: CA)
  Receive Date: 20121129
  Receipt Date: 20150730
  Transmission Date: 20151125
  Serious: Yes (Hospitalization, Other)
  Sender: FDA-Public Use
  Company Number: CA-ROCHE-1160057

PATIENT
  Age: 18 Year
  Sex: Female

DRUGS (8)
  1. XOLAIR [Suspect]
     Active Substance: OMALIZUMAB
     Route: 058
     Dates: start: 20150122
  2. XOLAIR [Suspect]
     Active Substance: OMALIZUMAB
     Indication: ASTHMA
     Route: 058
     Dates: start: 20081024
  3. XOLAIR [Suspect]
     Active Substance: OMALIZUMAB
     Route: 058
     Dates: start: 20130502
  4. XOLAIR [Suspect]
     Active Substance: OMALIZUMAB
     Route: 058
     Dates: start: 20121119
  5. XOLAIR [Suspect]
     Active Substance: OMALIZUMAB
     Route: 058
     Dates: start: 20121227
  6. XOLAIR [Suspect]
     Active Substance: OMALIZUMAB
     Route: 058
     Dates: start: 20130530
  7. XOLAIR [Suspect]
     Active Substance: OMALIZUMAB
     Route: 058
     Dates: start: 20130123
  8. XOLAIR [Suspect]
     Active Substance: OMALIZUMAB
     Route: 058
     Dates: start: 20101101

REACTIONS (20)
  - White blood cell count increased [Unknown]
  - Dizziness [Unknown]
  - Hypertension [Unknown]
  - Drug ineffective [Unknown]
  - Headache [Unknown]
  - Heart rate increased [Not Recovered/Not Resolved]
  - Hyperhidrosis [Unknown]
  - Weight decreased [Unknown]
  - Sinusitis [Unknown]
  - Vomiting [Unknown]
  - Blood pressure diastolic decreased [Not Recovered/Not Resolved]
  - Dyspnoea [Unknown]
  - Nasal discharge discolouration [Unknown]
  - Hyperaesthesia [Unknown]
  - Malaise [Unknown]
  - Nasopharyngitis [Unknown]
  - Gastrointestinal disorder [Unknown]
  - Pyrexia [Recovered/Resolved]
  - Nausea [Unknown]
  - Cough [Unknown]

NARRATIVE: CASE EVENT DATE: 20121110
